FAERS Safety Report 14534253 (Version 2)
Quarter: 2018Q1

REPORT INFORMATION
  Report Type: Other
  Country: FR (occurrence: FR)
  Receive Date: 20180215
  Receipt Date: 20180309
  Transmission Date: 20180509
  Serious: Yes (Other)
  Sender: FDA-Public Use
  Company Number: FR-MACLEODS PHARMACEUTICALS US LTD-MAC2018009713

PATIENT

DRUGS (8)
  1. ZYVOXID [Suspect]
     Active Substance: LINEZOLID
     Indication: INFECTION
     Dosage: 1200 MG, UNK
     Route: 042
     Dates: start: 20180110, end: 20180120
  2. LOXEN (NICARDIPINE HYDROCHLORIDE) [Suspect]
     Active Substance: NICARDIPINE HYDROCHLORIDE
     Indication: HYPERTENSION
     Dosage: 60 MG, UNK
     Route: 048
     Dates: start: 20180104, end: 20180121
  3. SCOPOLAMINE [Suspect]
     Active Substance: SCOPOLAMINE
     Indication: RESUSCITATION
     Dosage: 1 IN EVERY 72 HOUR
     Route: 003
     Dates: start: 20180120, end: 20180123
  4. PANTOPRAZOLE [Suspect]
     Active Substance: PANTOPRAZOLE
     Indication: PROPHYLAXIS AGAINST GASTROINTESTINAL ULCER
     Dosage: 10 MG, UNK
     Route: 048
     Dates: start: 20180118, end: 20180121
  5. LASILIX [Suspect]
     Active Substance: FUROSEMIDE
     Indication: DIURETIC THERAPY
     Dosage: 40 MG, UNK
     Route: 042
     Dates: start: 20180104, end: 20180121
  6. SOLU-MEDROL [Suspect]
     Active Substance: METHYLPREDNISOLONE SODIUM SUCCINATE
     Indication: ADRENOCORTICAL STEROID THERAPY
     Dosage: 80 MG, UNK
     Route: 042
     Dates: start: 20180103, end: 20180121
  7. LOVENOX [Suspect]
     Active Substance: ENOXAPARIN SODIUM
     Indication: THROMBOSIS PROPHYLAXIS
     Dosage: UNK
     Route: 042
     Dates: start: 20180112, end: 20180121
  8. LOVENOX [Suspect]
     Active Substance: ENOXAPARIN SODIUM
     Indication: THROMBOPHLEBITIS

REACTIONS (2)
  - Intra-abdominal haematoma [Recovered/Resolved]
  - Haemorrhage [Recovered/Resolved]

NARRATIVE: CASE EVENT DATE: 20180121
